FAERS Safety Report 5146523-1 (Version None)
Quarter: 2006Q4

REPORT INFORMATION
  Report Type: 
  Country: None (occurrence: None)
  Receive Date: 20061109
  Receipt Date: 20061031
  Transmission Date: 20070319
  Serious: Yes (Other)
  Sender: FDA-Public Use
  Company Number: US-JNJFOC-20060805154

PATIENT
  Sex: Female
  Weight: 43.09 kg

DRUGS (6)
  1. TOPAMAX [Suspect]
     Dosage: 100-125 MG AT BEDTIME
     Route: 048
  2. TOPAMAX [Suspect]
     Route: 048
  3. TOPAMAX [Suspect]
     Indication: MIGRAINE PROPHYLAXIS
     Route: 048
  4. MAXZIDE [Concomitant]
  5. ZOMIG [Concomitant]
     Indication: HEADACHE
  6. VICODIN [Concomitant]

REACTIONS (2)
  - DEAFNESS NEUROSENSORY [None]
  - TINNITUS [None]
